FAERS Safety Report 15230028 (Version 1)
Quarter: 2018Q4

REPORT INFORMATION
  Report Type: Spontaneous
  Country: US (occurrence: US)
  Receive Date: 20180802
  Receipt Date: 20180802
  Transmission Date: 20190204
  Serious: Yes (Other)
  Sender: FDA-Public Use
  Company Number: US-ACCORD-062668

PATIENT
  Age: 55 Year
  Sex: Female
  Weight: 74.84 kg

DRUGS (15)
  1. DOCETAXEL ACCORD [Suspect]
     Active Substance: DOCETAXEL
     Indication: BREAST CANCER
     Dosage: NO OF CYCLE: 04
     Route: 042
     Dates: start: 20110214, end: 20110719
  2. CYTOXAN [Suspect]
     Active Substance: CYCLOPHOSPHAMIDE
     Indication: BREAST CANCER
     Dosage: NO OF CYCLE: 04
     Dates: start: 20110214, end: 20110719
  3. DOCETAXEL. [Suspect]
     Active Substance: DOCETAXEL
     Indication: BREAST CANCER
  4. ANASTROZOLE. [Concomitant]
     Active Substance: ANASTROZOLE
     Dates: start: 20110801
  5. ZOFRAN [Concomitant]
     Active Substance: ONDANSETRON HYDROCHLORIDE
     Dosage: ROUTE OF ADMINISTRATION: IVP
     Dates: start: 20110119
  6. ADRIAMYCIN [Suspect]
     Active Substance: DOXORUBICIN HYDROCHLORIDE
     Indication: BREAST CANCER
     Dosage: NO OF CYCLE: 04
     Dates: start: 20110214, end: 20110719
  7. NORVASC [Concomitant]
     Active Substance: AMLODIPINE BESYLATE
     Route: 048
     Dates: start: 20070101
  8. HYDROCHLOROTHIAZIDE/LISINOPRIL [Concomitant]
     Active Substance: HYDROCHLOROTHIAZIDE\LISINOPRIL
     Route: 048
     Dates: start: 20070101
  9. VINORELBINE [Concomitant]
     Active Substance: VINORELBINE\VINORELBINE TARTRATE
     Dates: start: 20110214, end: 20110719
  10. ZIAC [Concomitant]
     Active Substance: BISOPROLOL FUMARATE\HYDROCHLOROTHIAZIDE
     Route: 048
     Dates: start: 20110119
  11. DOCETAXEL SUN PHARMA [Suspect]
     Active Substance: DOCETAXEL
     Indication: BREAST CANCER
  12. MORPHINE [Concomitant]
     Active Substance: MORPHINE
     Dosage: DOSE: 2-4 MG??ROUTE OF ADMINISTRATION: IVP
     Dates: start: 20110119
  13. DOCETAXEL. [Suspect]
     Active Substance: DOCETAXEL
     Indication: BREAST CANCER
  14. HYDROCODONE/PARACETAMOL [Concomitant]
     Dosage: 1-2 TABLET
     Route: 048
     Dates: start: 20110119
  15. METFORMIN [Concomitant]
     Active Substance: METFORMIN HYDROCHLORIDE
     Dates: start: 20070101

REACTIONS (1)
  - Alopecia [Recovering/Resolving]

NARRATIVE: CASE EVENT DATE: 20120101
